FAERS Safety Report 18614924 (Version 7)
Quarter: 2024Q4

REPORT INFORMATION
  Report Type: Report from Study
  Country: US (occurrence: US)
  Receive Date: 20201214
  Receipt Date: 20241225
  Transmission Date: 20250115
  Serious: Yes (Hospitalization)
  Sender: TAKEDA
  Company Number: US-TAKEDA-2020TUS055671

PATIENT
  Sex: Female

DRUGS (4)
  1. TEDUGLUTIDE [Suspect]
     Active Substance: TEDUGLUTIDE
     Indication: Short-bowel syndrome
     Dosage: UNK
  2. TEDUGLUTIDE [Suspect]
     Active Substance: TEDUGLUTIDE
     Dosage: UNK, QD
  3. TEDUGLUTIDE [Suspect]
     Active Substance: TEDUGLUTIDE
     Dosage: UNK
  4. TEDUGLUTIDE [Suspect]
     Active Substance: TEDUGLUTIDE

REACTIONS (10)
  - Migraine [Unknown]
  - Pyrexia [Unknown]
  - Stoma complication [Not Recovered/Not Resolved]
  - COVID-19 [Recovering/Resolving]
  - Diarrhoea [Recovering/Resolving]
  - Catheter site infection [Not Recovered/Not Resolved]
  - Gastrointestinal stoma output decreased [Unknown]
  - Product dose omission issue [Unknown]
  - Abdominal distension [Unknown]
  - Abdominal pain upper [Unknown]
